FAERS Safety Report 13779321 (Version 1)
Quarter: 2017Q3

REPORT INFORMATION
  Report Type: Spontaneous
  Country: US (occurrence: US)
  Receive Date: 20170721
  Receipt Date: 20170721
  Transmission Date: 20171127
  Serious: Yes (Hospitalization)
  Sender: FDA-Public Use
  Company Number: US-BAUSCH-BL-2017-021818

PATIENT
  Sex: Male

DRUGS (2)
  1. TETRABENAZINE. [Suspect]
     Active Substance: TETRABENAZINE
     Indication: HUNTINGTON^S DISEASE
     Route: 048
     Dates: start: 20110920
  2. TETRABENAZINE. [Suspect]
     Active Substance: TETRABENAZINE
     Dosage: GENERIC
     Route: 048
     Dates: start: 201509

REACTIONS (1)
  - Hospitalisation [Unknown]
